FAERS Safety Report 12693667 (Version 1)
Quarter: 2016Q3

REPORT INFORMATION
  Report Type: Spontaneous
  Country: US (occurrence: None)
  Receive Date: 20160826
  Receipt Date: 20160826
  Transmission Date: 20161109
  Serious: No
  Sender: FDA-Public Use
  Company Number: None

PATIENT
  Sex: Male

DRUGS (2)
  1. SOMATULINE DEPOT [Suspect]
     Active Substance: LANREOTIDE ACETATE
     Indication: GIGANTISM
     Route: 058
     Dates: start: 20160317
  2. SOMATULINE DEPOT [Suspect]
     Active Substance: LANREOTIDE ACETATE
     Indication: ACROMEGALY
     Route: 058
     Dates: start: 20160317

REACTIONS (6)
  - Eye irritation [None]
  - Diarrhoea [None]
  - Hyperhidrosis [None]
  - Blindness [None]
  - Asthenia [None]
  - Headache [None]

NARRATIVE: CASE EVENT DATE: 2016
